FAERS Safety Report 9659469 (Version 2)
Quarter: 2013Q4

REPORT INFORMATION
  Report Type: Report from Study
  Country: ZA (occurrence: ZA)
  Receive Date: 20131031
  Receipt Date: 20131111
  Transmission Date: 20140711
  Serious: Yes (Other)
  Sender: FDA-Public Use
  Company Number: PHHY2013ZA122894

PATIENT
  Age: 87 Year
  Sex: Female

DRUGS (2)
  1. ACLASTA [Suspect]
     Indication: OSTEOPOROSIS
     Dosage: 5 MG/100 ML, ONCE YEARLY
     Route: 042
     Dates: start: 2011
  2. ACLASTA [Suspect]
     Dosage: 5 MG/100 ML, ONCE YEARLY
     Route: 042
     Dates: start: 201211

REACTIONS (5)
  - Abasia [Unknown]
  - Fall [Unknown]
  - Muscle injury [Unknown]
  - Balance disorder [Unknown]
  - Limb injury [Unknown]
